FAERS Safety Report 7400871-0 (Version None)
Quarter: 2011Q2

REPORT INFORMATION
  Report Type: 
  Country: None (occurrence: None)
  Receive Date: 20110407
  Receipt Date: 20110404
  Transmission Date: 20111010
  Serious: Yes (Death, Hospitalization, Other)
  Sender: FDA-Public Use
  Company Number: US-PFIZER INC-2010113506

PATIENT
  Sex: Male
  Weight: 77.098 kg

DRUGS (6)
  1. EFFEXOR [Concomitant]
  2. REMERON [Concomitant]
  3. MONTELUKAST [Concomitant]
  4. CHANTIX [Suspect]
     Indication: SMOKING CESSATION THERAPY
     Dosage: UNK
     Dates: start: 20070420
  5. ADVAIR HFA [Concomitant]
  6. CRESTOR [Concomitant]

REACTIONS (7)
  - SUICIDAL IDEATION [None]
  - PARTNER STRESS [None]
  - NIGHTMARE [None]
  - ALCOHOLISM [None]
  - AFFECTIVE DISORDER [None]
  - COMPLETED SUICIDE [None]
  - DEPRESSION [None]
